FAERS Safety Report 13054816 (Version 1)
Quarter: 2016Q4

REPORT INFORMATION
  Report Type: Spontaneous
  Country: JP (occurrence: JP)
  Receive Date: 20161222
  Receipt Date: 20161222
  Transmission Date: 20170207
  Serious: Yes (Other)
  Sender: FDA-Public Use
  Company Number: JP-ACTELION-A-CH2016-143980

PATIENT
  Age: 79 Year
  Sex: Male

DRUGS (13)
  1. OPSUMIT [Suspect]
     Active Substance: MACITENTAN
     Indication: PULMONARY ARTERIAL HYPERTENSION
     Dosage: 10 MG, OD
     Route: 048
     Dates: start: 20160905, end: 20160916
  2. SAMSCA [Concomitant]
     Active Substance: TOLVAPTAN
  3. LASIX [Concomitant]
     Active Substance: FUROSEMIDE
  4. PIMOBENDAN [Concomitant]
     Active Substance: PIMOBENDAN
  5. DEPAS [Concomitant]
     Active Substance: ETIZOLAM
  6. DIGOSIN [Concomitant]
     Active Substance: DIGOXIN
  7. MINITRO [Concomitant]
  8. IMIDAPRIL HYDROCHLORIDE [Concomitant]
     Active Substance: IMIDAPRIL HYDROCHLORIDE
  9. ELIQUIS [Concomitant]
     Active Substance: APIXABAN
  10. MYSLEE [Concomitant]
     Active Substance: ZOLPIDEM TARTRATE
  11. AMLODIPINE [Concomitant]
     Active Substance: AMLODIPINE BESYLATE
  12. SPIRONOLACTONE. [Concomitant]
     Active Substance: SPIRONOLACTONE
  13. FERROUS CITRATE [Concomitant]
     Active Substance: FERROUS CITRATE

REACTIONS (6)
  - Anaemia [Unknown]
  - White blood cell count decreased [Unknown]
  - Pancytopenia [Unknown]
  - Oedema [Recovering/Resolving]
  - Weight increased [Recovering/Resolving]
  - Platelet count decreased [Unknown]

NARRATIVE: CASE EVENT DATE: 20160907
